FAERS Safety Report 9120744 (Version 1)
Quarter: 2013Q1

REPORT INFORMATION
  Report Type: Spontaneous
  Country: US (occurrence: US)
  Receive Date: 20130226
  Receipt Date: 20130226
  Transmission Date: 20140127
  Serious: Yes (Hospitalization)
  Sender: FDA-Public Use
  Company Number: US-ROCHE-1172923

PATIENT
  Sex: Female

DRUGS (3)
  1. PEGASYS [Suspect]
     Indication: CHRONIC HEPATITIS C
     Route: 058
     Dates: start: 20121215
  2. COPEGUS [Suspect]
     Indication: CHRONIC HEPATITIS C
     Dosage: IN DIVIDED DOSES
     Route: 048
     Dates: start: 20121215
  3. TELAPREVIR [Suspect]
     Indication: CHRONIC HEPATITIS C
     Route: 065

REACTIONS (11)
  - Leukopenia [Not Recovered/Not Resolved]
  - Febrile neutropenia [Not Recovered/Not Resolved]
  - Sepsis [Unknown]
  - Pyrexia [Recovering/Resolving]
  - Influenza like illness [Unknown]
  - Fatigue [Unknown]
  - Pruritus [Recovering/Resolving]
  - Mass [Recovering/Resolving]
  - Decreased appetite [Unknown]
  - Neutropenia [Unknown]
  - Febrile neutropenia [Unknown]
